FAERS Safety Report 9933894 (Version 2)
Quarter: 2014Q1

REPORT INFORMATION
  Report Type: Spontaneous
  Country: US (occurrence: US)
  Receive Date: 20140228
  Receipt Date: 20140228
  Transmission Date: 20141002
  Serious: No
  Sender: FDA-Public Use
  Company Number: US-MYLANLABS-2013S1018375

PATIENT
  Age: 15 Year
  Sex: Male
  Weight: 61.69 kg

DRUGS (3)
  1. AMNESTEEM CAPSULES [Suspect]
     Indication: ACNE
     Route: 048
     Dates: start: 20130709
  2. ADDERALL [Concomitant]
     Route: 048
  3. SEROQUEL [Concomitant]
     Route: 048

REACTIONS (2)
  - Haemoglobin increased [Not Recovered/Not Resolved]
  - Haematocrit increased [Not Recovered/Not Resolved]
